FAERS Safety Report 6501630-3 (Version None)
Quarter: 2009Q4

REPORT INFORMATION
  Report Type: 
  Country: None (occurrence: None)
  Receive Date: 20091216
  Receipt Date: 20091209
  Transmission Date: 20100525
  Serious: Yes (Other)
  Sender: FDA-Public Use
  Company Number: US-ELI_LILLY_AND_COMPANY-US200912002314

PATIENT
  Sex: Female

DRUGS (4)
  1. HUMALOG [Suspect]
     Indication: DIABETES MELLITUS
     Dosage: 3 U, DAILY (1/D)
  2. LANTUS [Concomitant]
     Dosage: 30 U, EACH EVENING
  3. LANTUS [Concomitant]
     Dosage: 10 U, DAILY (1/D)
  4. LANTUS [Concomitant]
     Dosage: 20 U, EACH EVENING

REACTIONS (4)
  - BLOOD GLUCOSE DECREASED [None]
  - BLOOD GLUCOSE INCREASED [None]
  - HYPOGLYCAEMIC UNCONSCIOUSNESS [None]
  - POOR QUALITY DRUG ADMINISTERED [None]
